FAERS Safety Report 7279336-5 (Version None)
Quarter: 2011Q1

REPORT INFORMATION
  Report Type: 
  Country: None (occurrence: None)
  Receive Date: 20110207
  Receipt Date: 20110201
  Transmission Date: 20110831
  Serious: Yes (Congenital Anomaly)
  Sender: FDA-Public Use
  Company Number: GB-MERCK-1010GBR00066B1

PATIENT

DRUGS (3)
  1. ETRAVIRINE [Concomitant]
     Route: 065
  2. ISENTRESS [Suspect]
     Route: 064
  3. EMTRICITABINE AND TENOFOVIR DISOPROXIL FUMARATE [Concomitant]
     Route: 065

REACTIONS (1)
  - EXOMPHALOS [None]
